FAERS Safety Report 5480229-4 (Version None)
Quarter: 2007Q4

REPORT INFORMATION
  Report Type: 
  Country: None (occurrence: None)
  Receive Date: 20071009
  Receipt Date: 20071002
  Transmission Date: 20080405
  Serious: Yes (Other)
  Sender: FDA-Public Use
  Company Number: CH-ELI_LILLY_AND_COMPANY-CH200710000787

PATIENT
  Age: 42 Year
  Sex: Female
  Weight: 74 kg

DRUGS (14)
  1. ZYPREXA [Suspect]
     Dosage: 20 MG, DAILY (1/D)
     Dates: end: 20070607
  2. ZYPREXA [Suspect]
     Dosage: 10 MG, DAILY (1/D)
     Dates: start: 20070608, end: 20070607
  3. TOPAMAX [Concomitant]
     Dosage: 100 MG, DAILY (1/D)
     Route: 048
  4. SEROQUEL [Concomitant]
     Dosage: 600 MG, DAILY (1/D)
     Route: 048
  5. SEROQUEL [Concomitant]
     Dosage: 800 MG, DAILY (1/D)
     Route: 048
     Dates: start: 20070607
  6. SEROQUEL [Concomitant]
     Dosage: 1200 MG, DAILY (1/D)
     Route: 048
     Dates: start: 20070619
  7. SEROQUEL [Concomitant]
     Dosage: 1500 MG, DAILY (1/D)
     Route: 048
     Dates: start: 20070622
  8. SEROQUEL [Concomitant]
     Dosage: 800 MG, DAILY (1/D)
     Route: 048
     Dates: start: 20070628
  9. PSYCHOPAX [Concomitant]
     Dosage: 15 MG, DAILY (1/D)
     Route: 048
     Dates: start: 20070531
  10. PSYCHOPAX [Concomitant]
     Dosage: 10 MG, DAILY (1/D)
     Route: 048
     Dates: start: 20070613
  11. PSYCHOPAX [Concomitant]
     Dosage: 6.7 MG, DAILY (1/D)
     Route: 048
     Dates: start: 20070615
  12. PSYCHOPAX [Concomitant]
     Dosage: 15 MG, DAILY (1/D)
     Route: 048
     Dates: start: 20070623
  13. PSYCHOPAX [Concomitant]
     Dosage: 10 MG, DAILY (1/D)
     Route: 048
     Dates: start: 20070704
  14. IMOVANE [Concomitant]
     Dosage: 7.5 MG, DAILY (1/D)
     Dates: start: 20070608

REACTIONS (5)
  - ELECTROCARDIOGRAM QT PROLONGED [None]
  - EOSINOPHILIA [None]
  - LEUKOCYTOSIS [None]
  - OEDEMA PERIPHERAL [None]
  - WEIGHT INCREASED [None]
